FAERS Safety Report 5492598-X (Version None)
Quarter: 2007Q4

REPORT INFORMATION
  Report Type: 
  Country: None (occurrence: None)
  Receive Date: 20071022
  Receipt Date: 20071010
  Transmission Date: 20080405
  Serious: Yes (Other)
  Sender: FDA-Public Use
  Company Number: PT-PFIZER INC-2007082667

PATIENT
  Sex: Female
  Weight: 51 kg

DRUGS (9)
  1. VFEND [Suspect]
     Indication: BRONCHOPULMONARY ASPERGILLOSIS
     Route: 042
  2. VFEND [Suspect]
     Route: 048
  3. TACROLIMUS [Concomitant]
     Route: 048
  4. PREDNISOLONE [Concomitant]
     Route: 048
  5. ANTIDEPRESSANTS [Concomitant]
  6. VALGANCICLOVIR HCL [Concomitant]
     Route: 048
  7. BACTRIM [Concomitant]
     Route: 048
  8. LOSARTAN POTASSIUM [Concomitant]
     Route: 048
  9. ACETYLSALICYLIC ACID SRT [Concomitant]
     Route: 048

REACTIONS (2)
  - DERMATITIS BULLOUS [None]
  - PSEUDOPORPHYRIA [None]
